FAERS Safety Report 5971391-5 (Version None)
Quarter: 2008Q4

REPORT INFORMATION
  Report Type: 
  Country: None (occurrence: None)
  Receive Date: 20081130
  Receipt Date: 20081124
  Transmission Date: 20090506
  Serious: Yes (Death, Other)
  Sender: FDA-Public Use
  Company Number: US-PFIZER INC-2008099478

PATIENT
  Sex: Male

DRUGS (2)
  1. ZOLOFT [Suspect]
     Dosage: DAILY DOSE:150MG
  2. ALL OTHER THERAPEUTIC PRODUCTS [Suspect]

REACTIONS (5)
  - DEATH [None]
  - DEPRESSION [None]
  - DRUG LEVEL INCREASED [None]
  - METASTASES TO LIVER [None]
  - PROSTATE CANCER METASTATIC [None]
